FAERS Safety Report 6419972-9 (Version None)
Quarter: 2009Q4

REPORT INFORMATION
  Report Type: 
  Country: None (occurrence: None)
  Receive Date: 20091029
  Receipt Date: 20091021
  Transmission Date: 20100525
  Serious: Yes (Other)
  Sender: FDA-Public Use
  Company Number: GB-PFIZER INC-2009286870

PATIENT
  Age: 45 Year

DRUGS (1)
  1. DIFLUCAN [Suspect]
     Indication: FUNGAL INFECTION

REACTIONS (2)
  - SEPSIS [None]
  - TUBERCULOSIS [None]
